FAERS Safety Report 13697120 (Version 1)
Quarter: 2017Q2

REPORT INFORMATION
  Report Type: Spontaneous
  Country: US (occurrence: US)
  Receive Date: 20170627
  Receipt Date: 20170627
  Transmission Date: 20170830
  Serious: Yes (Disabling)
  Sender: FDA-Public Use
  Company Number: None

PATIENT
  Age: 66 Year
  Sex: Male
  Weight: 85.5 kg

DRUGS (1)
  1. NEOSPORIN ECZEMA ESSENTIALS ANTI ITCH [Suspect]
     Active Substance: HYDROCORTISONE
     Indication: STEROID THERAPY
     Dosage: QUANTITY:1 30ML;?
     Route: 061
     Dates: start: 20130612, end: 20130616

REACTIONS (1)
  - Eczema [None]

NARRATIVE: CASE EVENT DATE: 20170609
